FAERS Safety Report 9796327 (Version 5)
Quarter: 2019Q1

REPORT INFORMATION
  Report Type: Report from Study
  Country: DE (occurrence: DE)
  Receive Date: 20140103
  Receipt Date: 20190320
  Transmission Date: 20190418
  Serious: Yes (Life-Threatening, Hospitalization)
  Sender: FDA-Public Use
  Company Number: DE-CELGENEUS-062-21880-13122215

PATIENT
  Age: 66 Year
  Sex: Male
  Weight: 75 kg

DRUGS (5)
  1. DEXAMETHASONE. [Suspect]
     Active Substance: DEXAMETHASONE
     Dosage: 40 MILLIGRAM
     Route: 048
     Dates: end: 20131227
  2. REVLIMID [Suspect]
     Active Substance: LENALIDOMIDE
     Dosage: 25 MILLIGRAM
     Route: 048
     Dates: end: 20131227
  3. DEXAMETHASONE. [Suspect]
     Active Substance: DEXAMETHASONE
     Indication: PLASMA CELL MYELOMA
     Dosage: 40 MILLIGRAM
     Route: 048
     Dates: start: 20131112, end: 20131210
  4. MST (MORPHINE SULFATE) [Suspect]
     Active Substance: MORPHINE SULFATE
     Indication: PAIN
     Route: 065
  5. REVLIMID [Suspect]
     Active Substance: LENALIDOMIDE
     Indication: PLASMA CELL MYELOMA
     Dosage: 25 MILLIGRAM
     Route: 048
     Dates: start: 20131112, end: 20131210

REACTIONS (15)
  - Blood alkaline phosphatase increased [None]
  - Pneumonia [Not Recovered/Not Resolved]
  - Constipation [Not Recovered/Not Resolved]
  - Septic shock [None]
  - Respiratory arrest [None]
  - Bacterial test positive [None]
  - Nausea [None]
  - Pleural effusion [None]
  - Systemic inflammatory response syndrome [Not Recovered/Not Resolved]
  - Gamma-glutamyltransferase increased [None]
  - Lung infiltration [None]
  - Abdominal pain [Not Recovered/Not Resolved]
  - Respiratory failure [None]
  - Blood lactate dehydrogenase increased [None]
  - Cardiac disorder [None]

NARRATIVE: CASE EVENT DATE: 20131209
